FAERS Safety Report 4815454-6 (Version None)
Quarter: 2005Q4

REPORT INFORMATION
  Report Type: 
  Country: None (occurrence: None)
  Receive Date: 20051027
  Receipt Date: 20051027
  Transmission Date: 20060501
  Serious: Yes (Death)
  Sender: FDA-Public Use
  Company Number: None

PATIENT
  Sex: Female
  Weight: 98.7 kg

DRUGS (2)
  1. PACLITAXEL [Suspect]
     Indication: PERITONEAL CARCINOMA
     Dosage: SEE IMAGE
     Route: 042
     Dates: start: 20050829
  2. CARBOPLATIN [Suspect]
     Dosage: SEE IMAGE
     Route: 042
     Dates: start: 20050829

REACTIONS (2)
  - DISEASE PROGRESSION [None]
  - RENAL FAILURE [None]
